FAERS Safety Report 15721896 (Version 3)
Quarter: 2019Q2

REPORT INFORMATION
  Report Type: Spontaneous
  Country: US (occurrence: US)
  Receive Date: 20181214
  Receipt Date: 20190617
  Transmission Date: 20190711
  Serious: No
  Sender: FDA-Public Use
  Company Number: US-PFIZER INC-2018511832

PATIENT
  Age: 77 Year
  Sex: Male
  Weight: 85.26 kg

DRUGS (2)
  1. XALKORI [Suspect]
     Active Substance: CRIZOTINIB
     Dosage: 250 MG, UNK
  2. XALKORI [Suspect]
     Active Substance: CRIZOTINIB
     Indication: LUNG NEOPLASM MALIGNANT
     Dosage: 250 MG, 2X/DAY (EVERY 8 HOURS OR 12 HOURS LIKE 9 IN THE MORNING AND THEN 9 AT NIGHT)

REACTIONS (1)
  - Diarrhoea [Recovering/Resolving]
